FAERS Safety Report 5360513-5 (Version None)
Quarter: 2007Q2

REPORT INFORMATION
  Report Type: 
  Country: None (occurrence: None)
  Receive Date: 20070618
  Receipt Date: 20070614
  Transmission Date: 20071010
  Serious: Yes (Death)
  Sender: FDA-Public Use
  Company Number: B0475179A

PATIENT
  Age: 2 Year
  Sex: Male
  Weight: 14 kg

DRUGS (2)
  1. AMOXICILLIN [Suspect]
     Dosage: 750MG PER DAY
     Route: 048
  2. HELICIDINE [Suspect]
     Dosage: 15ML PER DAY
     Route: 048

REACTIONS (1)
  - SUDDEN DEATH [None]
